FAERS Safety Report 11776248 (Version 1)
Quarter: 2015Q4

REPORT INFORMATION
  Report Type: Spontaneous
  Country: JP (occurrence: JP)
  Receive Date: 20151125
  Receipt Date: 20151125
  Transmission Date: 20160304
  Serious: Yes (Hospitalization, Other)
  Sender: FDA-Public Use
  Company Number: JP-ROCHE-1660430

PATIENT
  Age: 68 Year
  Sex: Female
  Weight: 40 kg

DRUGS (11)
  1. LOXOPROFEN NA [Concomitant]
     Active Substance: LOXOPROFEN SODIUM
     Dosage: AMOUNT OF 1 ONCE ADMINISTRATION: 60 (UNIT UNCERTAINTY)
     Route: 048
  2. ANPLAG [Concomitant]
     Active Substance: SARPOGRELATE
     Dosage: AMOUNT OF 1 ONCE ADMINISTRATION: 100 (UNIT UNCERTAINTY)
     Route: 048
  3. AVASTIN [Suspect]
     Active Substance: BEVACIZUMAB
     Indication: COLON CANCER
     Dosage: TREATMENT LINE: 1?COMPLETED TREATMENT CYCLE NUMBER: 22
     Route: 041
     Dates: start: 20140326, end: 20150513
  4. ELPLAT [Concomitant]
     Active Substance: OXALIPLATIN
     Indication: RECTAL CANCER
     Route: 041
     Dates: start: 20150902
  5. PREDNISOLONE. [Concomitant]
     Active Substance: PREDNISOLONE
     Dosage: AMOUNT OF 1 ONCE ADMINISTRATION: 1 (UNIT UNCERTAINTY)
     Route: 048
  6. XELODA [Suspect]
     Active Substance: CAPECITABINE
     Indication: RECTAL CANCER
     Dosage: COMPLETED TREATMENT CYCLE NUMBER: 22
     Route: 048
     Dates: start: 20140326
  7. NIFEDIPINE. [Concomitant]
     Active Substance: NIFEDIPINE
     Dosage: AMOUNT OF 1 ONCE ADMINISTRATION: 10 (UNIT UNCERTAINTY)
     Route: 048
     Dates: end: 20140922
  8. ELPLAT [Concomitant]
     Active Substance: OXALIPLATIN
     Indication: RECTAL CANCER
     Route: 041
     Dates: start: 20140326, end: 20141001
  9. AZULFIDINE EN-TABS [Concomitant]
     Active Substance: SULFASALAZINE
     Dosage: AMOUNT OF 1 ONCE ADMINISTRATION: 250 (UNIT UNCERTAINTY)
     Route: 048
  10. LANSOPRAZOLE. [Concomitant]
     Active Substance: LANSOPRAZOLE
     Dosage: AMOUNT OF 1 ONCE ADMINISTRATION: 15 (UNIT UNCERTAINTY)
     Route: 048
  11. COMELIAN [Concomitant]
     Active Substance: DILAZEP
     Dosage: AMOUNT OF 1 ONCE ADMINISTRATION: 50 (UNIT UNCERTAINTY)
     Route: 048

REACTIONS (3)
  - Spinal cord infarction [Not Recovered/Not Resolved]
  - Paralysis [Recovering/Resolving]
  - Muscular weakness [Recovering/Resolving]

NARRATIVE: CASE EVENT DATE: 20150909
